FAERS Safety Report 5921633-7 (Version None)
Quarter: 2008Q4

REPORT INFORMATION
  Report Type: 
  Country: None (occurrence: None)
  Receive Date: 20081017
  Receipt Date: 20081015
  Transmission Date: 20090506
  Serious: Yes (Hospitalization)
  Sender: FDA-Public Use
  Company Number: US-SP-2008-02502

PATIENT
  Sex: Male

DRUGS (3)
  1. TUBERSOL [Suspect]
     Indication: TUBERCULIN TEST
     Route: 023
  2. SUSTIVA [Concomitant]
  3. COMBIVIR [Concomitant]

REACTIONS (5)
  - LEUKOCYTOSIS [None]
  - ORAL DISORDER [None]
  - PYREXIA [None]
  - RASH GENERALISED [None]
  - RASH VESICULAR [None]
